FAERS Safety Report 7765562-5 (Version None)
Quarter: 2011Q3

REPORT INFORMATION
  Report Type: 
  Country: None (occurrence: None)
  Receive Date: 20110921
  Receipt Date: 20110908
  Transmission Date: 20111222
  Serious: Yes (Other)
  Sender: FDA-Public Use
  Company Number: PHHY2011JP43998

PATIENT
  Sex: Female

DRUGS (3)
  1. TASIGNA [Suspect]
     Indication: CHRONIC MYELOID LEUKAEMIA
     Dosage: 800 MG, DAILY
     Route: 048
     Dates: start: 20100917, end: 20101002
  2. POTASSIUM GLUCONATE TAB [Concomitant]
     Indication: HYPOKALAEMIA
     Dosage: 3 MEQ, UNK
  3. BIOFERMIN [Concomitant]
     Dosage: 3 G, UNK
     Route: 048

REACTIONS (9)
  - ELECTROCARDIOGRAM ST SEGMENT DEPRESSION [None]
  - ATRIOVENTRICULAR BLOCK FIRST DEGREE [None]
  - HEART RATE INCREASED [None]
  - RIGHT VENTRICULAR FAILURE [None]
  - CHEST DISCOMFORT [None]
  - ABDOMINAL PAIN UPPER [None]
  - HEPATIC CONGESTION [None]
  - SINUS TACHYCARDIA [None]
  - PERICARDIAL EFFUSION [None]
